FAERS Safety Report 4503096-1 (Version None)
Quarter: 2004Q4

REPORT INFORMATION
  Report Type: 
  Country: None (occurrence: None)
  Receive Date: 20041112
  Receipt Date: 20041101
  Transmission Date: 20050328
  Serious: Yes (Death)
  Sender: FDA-Public Use
  Company Number: 2004086568

PATIENT
  Sex: Female

DRUGS (4)
  1. VIRACEPT [Suspect]
     Indication: PROPHYLAXIS AGAINST HIV INFECTION
     Dosage: 2500 MG (1 D), PLACENTAL
  2. NEVIRAPINE (NEVIRAPINE) [Suspect]
     Indication: PROPHYLAXIS AGAINST HIV INFECTION
     Dosage: 400 MG (200 MG , 1 D), PLACENTAL
  3. DIDANOSINE [Suspect]
     Indication: PROPHYLAXIS AGAINST HIV INFECTION
     Dosage: 400 MG (1 D), PLACENTAL
  4. FOLIC ACID [Suspect]
     Indication: ILL-DEFINED DISORDER
     Dosage: PLACENTAL

REACTIONS (11)
  - ABORTION INDUCED [None]
  - CONGENITAL ATRIAL SEPTAL DEFECT [None]
  - CONGENITAL TRICUSPID VALVE ATRESIA [None]
  - CONGENITAL VENTRICULAR SEPTAL DEFECT [None]
  - DRUG EXPOSURE DURING PREGNANCY [None]
  - INTRA-UTERINE DEATH [None]
  - PULMONARY ARTERY ATRESIA [None]
  - PULMONARY ARTERY STENOSIS CONGENITAL [None]
  - UHL'S ANOMALY [None]
  - VENTRICULAR HYPERTROPHY [None]
  - VENTRICULAR HYPOPLASIA [None]
